FAERS Safety Report 11495483 (Version 1)
Quarter: 2015Q3

REPORT INFORMATION
  Report Type: Spontaneous
  Country: US (occurrence: None)
  Receive Date: 20150910
  Receipt Date: 20150910
  Transmission Date: 20151125
  Serious: No
  Sender: FDA-Public Use
  Company Number: None

PATIENT
  Age: 29 Year
  Sex: Male
  Weight: 58.97 kg

DRUGS (7)
  1. MOBIC [Concomitant]
     Active Substance: MELOXICAM
  2. ALPRAZOLAM. [Concomitant]
     Active Substance: ALPRAZOLAM
  3. STRATTERA [Suspect]
     Active Substance: ATOMOXETINE HYDROCHLORIDE
     Indication: ATTENTION DEFICIT/HYPERACTIVITY DISORDER
     Dosage: 1 PILL
     Route: 048
     Dates: start: 20150903, end: 20150908
  4. FLEXARIL [Concomitant]
  5. HYDROCODONE [Concomitant]
     Active Substance: HYDROCODONE
  6. VENTOLIN [Concomitant]
     Active Substance: ALBUTEROL SULFATE
  7. ONDANSETRON [Concomitant]
     Active Substance: ONDANSETRON

REACTIONS (5)
  - Headache [None]
  - Erectile dysfunction [None]
  - Migraine [None]
  - Painful ejaculation [None]
  - Libido decreased [None]

NARRATIVE: CASE EVENT DATE: 20150903
